FAERS Safety Report 7293788-6 (Version None)
Quarter: 2011Q1

REPORT INFORMATION
  Report Type: 
  Country: None (occurrence: None)
  Receive Date: 20110215
  Receipt Date: 20110201
  Transmission Date: 20110831
  Serious: Yes (Hospitalization, Other)
  Sender: FDA-Public Use
  Company Number: FR-ELI_LILLY_AND_COMPANY-FR201102000217

PATIENT
  Sex: Male

DRUGS (2)
  1. CISPLATIN [Concomitant]
     Indication: TRANSITIONAL CELL CARCINOMA
     Dosage: 70 MG/M2, UNKNOWN
     Route: 042
     Dates: start: 20100115
  2. GEMZAR [Suspect]
     Indication: TRANSITIONAL CELL CARCINOMA
     Dosage: 1250 MG/M2, UNKNOWN
     Route: 042
     Dates: start: 20100115

REACTIONS (8)
  - DIARRHOEA [None]
  - NAUSEA [None]
  - RENAL FAILURE [None]
  - GENERAL PHYSICAL HEALTH DETERIORATION [None]
  - ASTHENIA [None]
  - CHILLS [None]
  - PYREXIA [None]
  - ANAEMIA [None]
